FAERS Safety Report 11288602 (Version 1)
Quarter: 2015Q3

REPORT INFORMATION
  Report Type: Spontaneous
  Country: US (occurrence: US)
  Receive Date: 20150721
  Receipt Date: 20150721
  Transmission Date: 20151125
  Serious: No
  Sender: FDA-Public Use
  Company Number: US-UNITED THERAPEUTICS-UNT-2015-003497

PATIENT
  Age: 41 Year
  Sex: Female
  Weight: 76.64 kg

DRUGS (6)
  1. REVATIO [Concomitant]
     Active Substance: SILDENAFIL CITRATE
     Indication: PRODUCT USED FOR UNKNOWN INDICATION
  2. SILDENAFIL. [Concomitant]
     Active Substance: SILDENAFIL
     Indication: PRODUCT USED FOR UNKNOWN INDICATION
  3. REMODULIN [Suspect]
     Active Substance: TREPROSTINIL
     Dosage: 0.073 ?G/KG/MIN, CONTINUING
     Route: 041
     Dates: start: 20140409
  4. XARELTO [Concomitant]
     Active Substance: RIVAROXABAN
     Indication: PRODUCT USED FOR UNKNOWN INDICATION
  5. REMODULIN [Suspect]
     Active Substance: TREPROSTINIL
     Indication: PULMONARY ARTERIAL HYPERTENSION
     Dosage: 0.083 ?G/KG/MIN, CONTINUING
     Route: 041
     Dates: start: 20140408
  6. REMODULIN [Suspect]
     Active Substance: TREPROSTINIL
     Dosage: 0.076 ?G/KG/MIN, CONTINUING
     Route: 041
     Dates: start: 20140409

REACTIONS (10)
  - Mass [Unknown]
  - Lacrimation increased [Unknown]
  - Pain [Recovering/Resolving]
  - Cyanosis [Recovering/Resolving]
  - Eye pruritus [Unknown]
  - Night sweats [Unknown]
  - Arthralgia [Not Recovered/Not Resolved]
  - Ocular hyperaemia [Unknown]
  - Sleep disorder [Unknown]
  - Rash [Recovering/Resolving]

NARRATIVE: CASE EVENT DATE: 20150412
